FAERS Safety Report 20004862 (Version 2)
Quarter: 2021Q4

REPORT INFORMATION
  Report Type: Spontaneous
  Country: CH (occurrence: CH)
  Receive Date: 20211028
  Receipt Date: 20211207
  Transmission Date: 20220303
  Serious: Yes (Death)
  Sender: FDA-Public Use
  Company Number: CH-NOVARTISPH-NVSC2021CH221048

PATIENT
  Sex: Female

DRUGS (5)
  1. KISQALI [Suspect]
     Active Substance: RIBOCICLIB
     Indication: Breast cancer metastatic
     Dosage: 200 MG
     Route: 065
     Dates: end: 20210601
  2. KISQALI [Suspect]
     Active Substance: RIBOCICLIB
     Dosage: 200 MG (3 WEEKS/ 1-WEEK PAUSE)
     Route: 048
     Dates: start: 20210601, end: 20210720
  3. KISQALI [Suspect]
     Active Substance: RIBOCICLIB
     Dosage: 200 MG (3 WEEKS/ 1-WEEK PAUSE)
     Route: 048
     Dates: start: 20210819, end: 20210827
  4. ARIMIDEX [Concomitant]
     Active Substance: ANASTROZOLE
     Indication: Breast cancer metastatic
     Dosage: 1 MG
     Route: 065
     Dates: end: 20210601
  5. ARIMIDEX [Concomitant]
     Active Substance: ANASTROZOLE
     Dosage: 1 MG
     Route: 065
     Dates: start: 20210819, end: 20210827

REACTIONS (15)
  - Liver function test increased [Fatal]
  - Fatigue [Fatal]
  - Nausea [Fatal]
  - Ascites [Fatal]
  - General physical health deterioration [Fatal]
  - Lyme disease [Fatal]
  - Arthritis [Fatal]
  - Jaundice [Fatal]
  - Pleural effusion [Fatal]
  - Hypoalbuminaemia [Fatal]
  - Hypertensive crisis [Fatal]
  - Breast cancer metastatic [Fatal]
  - Malignant neoplasm progression [Fatal]
  - Drug intolerance [Fatal]
  - Drug ineffective [Fatal]

NARRATIVE: CASE EVENT DATE: 20210628
